FAERS Safety Report 9212754 (Version 1)
Quarter: 2013Q1

REPORT INFORMATION
  Report Type: Spontaneous
  Country: US (occurrence: None)
  Receive Date: 20120820
  Receipt Date: 20120820
  Transmission Date: 20140127
  Serious: No
  Sender: FDA-Public Use
  Company Number: 1000037000

PATIENT
  Age: 56 Year
  Sex: Male

DRUGS (6)
  1. VIIBRYD [Suspect]
     Indication: DEPRESSION
     Route: 048
     Dates: start: 20120711
  2. CITALOPRAM [Suspect]
     Indication: DEPRESSION
     Route: 048
     Dates: start: 2012, end: 2012
  3. KLONOPIN (CLONAZEPAM)(CLONAZEPAM) [Concomitant]
  4. ELAVIL (AMITRIPTYLINE) (AMITRIPTYLINE) [Concomitant]
  5. NEURONTIN (GABAPENTIN) (GABAPENTIN) [Concomitant]
  6. MORPHINE SULFATE (MORPHINE SULFATE) (MORPHINE SULFATE) [Concomitant]

REACTIONS (1)
  - Anger [None]
